FAERS Safety Report 21392451 (Version 1)
Quarter: 2022Q3

REPORT INFORMATION
  Report Type: Report from Study
  Country: CO (occurrence: CO)
  Receive Date: 20220929
  Receipt Date: 20220929
  Transmission Date: 20221027
  Serious: Yes (Hospitalization)
  Sender: FDA-Public Use
  Company Number: CO-ABBVIE-4132351

PATIENT
  Age: 57 Year
  Sex: Male
  Weight: 59 kg

DRUGS (1)
  1. ZEMPLAR [Suspect]
     Active Substance: PARICALCITOL
     Indication: Product used for unknown indication
     Dosage: POST DIALYSIS
     Route: 042
     Dates: start: 20220713, end: 20220912

REACTIONS (1)
  - Cerebral disorder [Recovered/Resolved]

NARRATIVE: CASE EVENT DATE: 20220901
